FAERS Safety Report 9852864 (Version 2)
Quarter: 2014Q1

REPORT INFORMATION
  Report Type: Report from Study
  Country: CZ (occurrence: CZ)
  Receive Date: 20140129
  Receipt Date: 20140207
  Transmission Date: 20141002
  Serious: Yes (Death, Hospitalization)
  Sender: FDA-Public Use
  Company Number: CZ-PFIZER INC-2014025589

PATIENT
  Age: 59 Year
  Sex: Female

DRUGS (3)
  1. SUTENT [Suspect]
     Indication: METASTATIC RENAL CELL CARCINOMA
     Dosage: 50 MG, 1X/DAY
     Dates: start: 20130918, end: 20131001
  2. SUTENT [Suspect]
     Dosage: 37.5 MG, 1X/DAY
     Dates: start: 20131002, end: 20131007
  3. SUTENT [Suspect]
     Dosage: 25 MG, 1X/DAY
     Dates: start: 20131008, end: 20131015

REACTIONS (3)
  - Bronchopneumonia [Fatal]
  - Thrombocytopenia [Recovered/Resolved]
  - Hydrocephalus [Unknown]
